FAERS Safety Report 5279870-3 (Version None)
Quarter: 2007Q1

REPORT INFORMATION
  Report Type: 
  Country: None (occurrence: None)
  Receive Date: 20061215
  Receipt Date: 20060821
  Transmission Date: 20070707
  Serious: Yes (Life-Threatening, Hospitalization, Other)
  Sender: FDA-Public Use
  Company Number: HQWYE806122AUG06

PATIENT
  Age: 49 Year
  Sex: Male
  Weight: 104.42 kg

DRUGS (5)
  1. EFFEXOR XR [Suspect]
     Indication: DEPRESSION
     Dosage: 75 MG 3X PER 1 DAY, ORAL
     Route: 048
     Dates: end: 19990101
  2. LEVOTHYROXINE SODIUM [Concomitant]
  3. LIPITOR [Concomitant]
  4. CALCIUM (CALCIUM) [Concomitant]
  5. NEXIUM [Concomitant]

REACTIONS (1)
  - HYPOKALAEMIA [None]
